FAERS Safety Report 5320805-2 (Version None)
Quarter: 2007Q2

REPORT INFORMATION
  Report Type: 
  Country: None (occurrence: None)
  Receive Date: 20070502
  Receipt Date: 20070425
  Transmission Date: 20071010
  Serious: Yes (Death, Hospitalization)
  Sender: FDA-Public Use
  Company Number: CLOF-10513

PATIENT

DRUGS (5)
  1. CLOFARABINE. MFR: GENZYME [Suspect]
     Indication: ACUTE MYELOID LEUKAEMIA RECURRENT
     Dates: start: 20070323
  2. CYCLOPHOSPHAMIDE [Suspect]
     Indication: ACUTE MYELOID LEUKAEMIA RECURRENT
     Dates: start: 20070101, end: 20070101
  3. ACETAMINOPHEN [Concomitant]
  4. ALLOPURINOL [Concomitant]
  5. HYDROCORTISONE [Concomitant]

REACTIONS (14)
  - CARDIAC FAILURE [None]
  - EJECTION FRACTION DECREASED [None]
  - FLUID OVERLOAD [None]
  - HAEMODIALYSIS [None]
  - HYPERTENSION [None]
  - LUNG INFILTRATION [None]
  - MULTI-ORGAN FAILURE [None]
  - OXYGEN CONSUMPTION INCREASED [None]
  - PERICARDIAL EFFUSION [None]
  - PLEURAL EFFUSION [None]
  - PULMONARY OEDEMA [None]
  - PYREXIA [None]
  - RENAL FAILURE [None]
  - RESPIRATORY FAILURE [None]
